FAERS Safety Report 19306249 (Version 1)
Quarter: 2021Q2

REPORT INFORMATION
  Report Type: Report from Study
  Country: BR (occurrence: BR)
  Receive Date: 20210526
  Receipt Date: 20210526
  Transmission Date: 20210717
  Serious: Yes (Other)
  Sender: FDA-Public Use
  Company Number: NVSC2021BR115828

PATIENT

DRUGS (1)
  1. AZORGA [Suspect]
     Active Substance: BRINZOLAMIDE\TIMOLOL MALEATE
     Indication: PRODUCT USED FOR UNKNOWN INDICATION
     Dosage: 5 ML (SIX YEARS)
     Route: 065

REACTIONS (4)
  - Blindness [Unknown]
  - Dementia Alzheimer^s type [Not Recovered/Not Resolved]
  - Bipolar disorder [Unknown]
  - Glaucoma [Unknown]
